FAERS Safety Report 4924919-8 (Version None)
Quarter: 2006Q1

REPORT INFORMATION
  Report Type: 
  Country: None (occurrence: None)
  Receive Date: 20060222
  Receipt Date: 20060203
  Transmission Date: 20060701
  Serious: Yes (Hospitalization)
  Sender: FDA-Public Use
  Company Number: 2006-138100-NL

PATIENT
  Age: 42 Year
  Sex: Female

DRUGS (5)
  1. MIRTAZAPINE [Suspect]
     Indication: PSYCHOTIC DISORDER
     Dosage: 30 MG, ORAL
     Route: 048
     Dates: start: 20050101, end: 20050215
  2. ACETAMINOPHEN [Suspect]
     Indication: PYREXIA
     Dosage: DF, ORAL
     Route: 048
     Dates: start: 20050125, end: 20050215
  3. AMISULPRIDE [Suspect]
     Indication: PSYCHOTIC DISORDER
     Dosage: 400 MG, ORAL
     Route: 048
     Dates: start: 20050101, end: 20050215
  4. NEO CITRAN SINUS [Suspect]
     Indication: PYREXIA
     Dosage: DF, ORAL
     Route: 048
     Dates: start: 20050125, end: 20050215
  5. ZOLPIDEM TARTRATE [Concomitant]

REACTIONS (3)
  - HEPATOCELLULAR DAMAGE [None]
  - PYREXIA [None]
  - RHINITIS [None]
